FAERS Safety Report 5817590-4 (Version None)
Quarter: 2008Q3

REPORT INFORMATION
  Report Type: 
  Country: None (occurrence: None)
  Receive Date: 20080722
  Receipt Date: 20080611
  Transmission Date: 20090109
  Serious: No
  Sender: FDA-Public Use
  Company Number: US-BAYER-200812717BCC

PATIENT
  Age: 37 Year
  Sex: Male
  Weight: 127 kg

DRUGS (6)
  1. ALEVE (CAPLET) [Suspect]
     Indication: DRUG USE FOR UNKNOWN INDICATION
     Dosage: TOTAL DAILY DOSE: 220 MG  UNIT DOSE: 220 MG
     Route: 048
     Dates: start: 20080611
  2. ALEVE (CAPLET) [Suspect]
     Dosage: TOTAL DAILY DOSE: 220 MG  UNIT DOSE: 220 MG
     Route: 048
     Dates: start: 20080101
  3. PLAVIX [Concomitant]
  4. SPIRONOLACTONE [Concomitant]
  5. CARDIZEM [Concomitant]
  6. PRAVACHOL [Concomitant]

REACTIONS (3)
  - FEELING ABNORMAL [None]
  - RESPIRATORY RATE DECREASED [None]
  - UNEVALUABLE EVENT [None]
